FAERS Safety Report 26186486 (Version 1)
Quarter: 2025Q4

REPORT INFORMATION
  Report Type: Spontaneous
  Country: US (occurrence: None)
  Receive Date: 20251219
  Receipt Date: 20251219
  Transmission Date: 20260118
  Serious: Yes (Hospitalization)
  Sender: FDA-CTU
  Company Number: None

PATIENT
  Age: 64 Year
  Sex: Male

DRUGS (1)
  1. RISPERIDONE [Suspect]
     Active Substance: RISPERIDONE
     Indication: Agitation
     Dosage: 0.5 MG HS PO
     Route: 048
     Dates: start: 20250530, end: 20250618

REACTIONS (3)
  - Thrombocytopenia [None]
  - Lethargy [None]
  - Anaemia [None]

NARRATIVE: CASE EVENT DATE: 20250612
